FAERS Safety Report 7600429-4 (Version None)
Quarter: 2011Q3

REPORT INFORMATION
  Report Type: 
  Country: None (occurrence: None)
  Receive Date: 20110711
  Receipt Date: 20110705
  Transmission Date: 20111222
  Serious: Yes (Life-Threatening, Hospitalization)
  Sender: FDA-Public Use
  Company Number: PHHY2011DE58481

PATIENT
  Sex: Female

DRUGS (1)
  1. ONBREZ [Suspect]
     Dates: start: 20110628

REACTIONS (2)
  - MYOCARDIAL INFARCTION [None]
  - ARTERIOSPASM CORONARY [None]
